FAERS Safety Report 18039387 (Version 1)
Quarter: 2020Q3

REPORT INFORMATION
  Report Type: Spontaneous
  Country: US (occurrence: US)
  Receive Date: 20200717
  Receipt Date: 20200717
  Transmission Date: 20201103
  Serious: Yes (Other)
  Sender: FDA-Public Use
  Company Number: US-PFIZER INC-2020272720

PATIENT
  Age: 43 Year
  Sex: Female
  Weight: 61.69 kg

DRUGS (5)
  1. ENBREL [Concomitant]
     Active Substance: ETANERCEPT
     Dosage: UNK
  2. HUMIRA [Concomitant]
     Active Substance: ADALIMUMAB
     Dosage: UNK
     Dates: start: 201904, end: 201905
  3. PREMARIN [Suspect]
     Active Substance: ESTROGENS, CONJUGATED
     Indication: HORMONE REPLACEMENT THERAPY
     Dosage: UNK, 2X/WEEK
     Route: 067
     Dates: start: 201508
  4. HYDROXYCHLOROQUINE [Concomitant]
     Active Substance: HYDROXYCHLOROQUINE
     Dosage: UNK, 2X/DAY
  5. CIMZIA [Concomitant]
     Active Substance: CERTOLIZUMAB PEGOL
     Dosage: UNK (EVERY TWO WEEKS)

REACTIONS (5)
  - Suicidal ideation [Recovering/Resolving]
  - Drug dependence [Unknown]
  - Product use in unapproved indication [Unknown]
  - Off label use [Unknown]
  - Drug effective for unapproved indication [Unknown]

NARRATIVE: CASE EVENT DATE: 201508
